FAERS Safety Report 19149606 (Version 1)
Quarter: 2021Q2

REPORT INFORMATION
  Report Type: Spontaneous
  Country: ES (occurrence: ES)
  Receive Date: 20210417
  Receipt Date: 20210417
  Transmission Date: 20210717
  Serious: Yes (Hospitalization, Other)
  Sender: FDA-Public Use
  Company Number: ES-MSNLABS-2021MSNLIT00105

PATIENT

DRUGS (6)
  1. METHYLPREDNISOLONE. [Concomitant]
     Active Substance: METHYLPREDNISOLONE
     Indication: IMMUNE-MEDIATED MYOSITIS
     Dosage: 125 MILLIGRAM DAILY
     Route: 065
  2. AZATHIOPRINE. [Suspect]
     Active Substance: AZATHIOPRINE
     Indication: IMMUNE-MEDIATED MYOSITIS
     Dosage: 100 MILLIGRAM DAILY
     Route: 065
  3. RAMIPRIL. [Concomitant]
     Active Substance: RAMIPRIL
     Indication: HYPERTENSION
     Dosage: 5 MILLIGRAM DAILY
     Route: 065
  4. PANTOPRAZOLE [Concomitant]
     Active Substance: PANTOPRAZOLE
     Indication: DRUG THERAPY
     Dosage: 40 MILLIGRAM DAILY;
     Route: 065
  5. ATORVASTATIN TABLETS 20MG [Suspect]
     Active Substance: ATORVASTATIN
     Indication: HYPERLIPIDAEMIA
     Dosage: 20 MILLIGRAM DAILY
     Route: 065
  6. PREDNISONE. [Concomitant]
     Active Substance: PREDNISONE
     Indication: IMMUNE-MEDIATED MYOSITIS
     Dosage: 30 MILLIGRAM DAILY; SCHEDULED FOR 6 MONTHS
     Route: 065

REACTIONS (4)
  - Neutropenia [Recovered/Resolved]
  - Leukopenia [Recovered/Resolved]
  - Skin toxicity [Unknown]
  - Immune-mediated myositis [Recovering/Resolving]
